FAERS Safety Report 16917483 (Version 2)
Quarter: 2019Q4

REPORT INFORMATION
  Report Type: Spontaneous
  Country: CA (occurrence: CA)
  Receive Date: 20191015
  Receipt Date: 20191223
  Transmission Date: 20200122
  Serious: Yes (Hospitalization, Other)
  Sender: FDA-Public Use
  Company Number: CA-TEVA-2019-CA-1121200

PATIENT
  Age: 14 Year
  Sex: Male
  Weight: 58 kg

DRUGS (6)
  1. HYDROCORTISONE. [Concomitant]
     Active Substance: HYDROCORTISONE
  2. CARBOPLATIN. [Suspect]
     Active Substance: CARBOPLATIN
     Indication: CNS GERMINOMA
     Dosage: 930 MILLIGRAM DAILY;
     Route: 042
  3. DESMOPRESSIN [Concomitant]
     Active Substance: DESMOPRESSIN
  4. ONDANSETRON [Concomitant]
     Active Substance: ONDANSETRON
  5. ETOPOSIDE. [Suspect]
     Active Substance: ETOPOSIDE
     Indication: CNS GERMINOMA
     Dosage: 230 MILLIGRAM DAILY;
     Route: 042
  6. LEVOTHYROXINE. [Concomitant]
     Active Substance: LEVOTHYROXINE

REACTIONS (4)
  - Rash [Recovered/Resolved]
  - Flushing [Recovered/Resolved]
  - Oropharyngeal pain [Recovered/Resolved]
  - Product use in unapproved indication [Recovered/Resolved]
